FAERS Safety Report 8211350-5 (Version None)
Quarter: 2012Q1

REPORT INFORMATION
  Report Type: 
  Country: None (occurrence: None)
  Receive Date: 20120315
  Receipt Date: 20120315
  Transmission Date: 20120608
  Serious: Yes (Other)
  Sender: FDA-Public Use
  Company Number: None

PATIENT
  Sex: Male
  Weight: 146.96 kg

DRUGS (1)
  1. FINASTERIDE [Suspect]
     Indication: PROSTATOMEGALY
     Dosage: 5MGS
     Route: 048
     Dates: start: 20120202, end: 20120314

REACTIONS (1)
  - ERECTILE DYSFUNCTION [None]
